FAERS Safety Report 6236574-8 (Version None)
Quarter: 2009Q2

REPORT INFORMATION
  Report Type: 
  Country: None (occurrence: None)
  Receive Date: 20090617
  Receipt Date: 20080430
  Transmission Date: 20091009
  Serious: No
  Sender: FDA-Public Use
  Company Number: 274876

PATIENT
  Age: 55 Year
  Sex: Female

DRUGS (2)
  1. LEVEMIR [Suspect]
     Indication: DIABETES MELLITUS
     Dosage: 130 LU, SUBCUTANEOUS
     Route: 058
     Dates: start: 20080201, end: 20080401
  2. LANTUS (INSULIN ANALOGUE) [Concomitant]

REACTIONS (1)
  - INJECTION SITE RASH [None]
